FAERS Safety Report 14578526 (Version 1)
Quarter: 2018Q1

REPORT INFORMATION
  Report Type: Spontaneous
  Country: US (occurrence: US)
  Receive Date: 20180227
  Receipt Date: 20180227
  Transmission Date: 20180509
  Serious: Yes (Other)
  Sender: FDA-Public Use
  Company Number: None

PATIENT
  Age: 23 Year
  Sex: Female
  Weight: 51.26 kg

DRUGS (3)
  1. ANTIBIOTIC [Concomitant]
     Active Substance: UNSPECIFIED INGREDIENT
  2. NAPROXEN. [Concomitant]
     Active Substance: NAPROXEN
  3. MIRENA [Suspect]
     Active Substance: LEVONORGESTREL

REACTIONS (5)
  - Quality of life decreased [None]
  - Pelvic pain [None]
  - Device related infection [None]
  - Bedridden [None]
  - Pelvic infection [None]

NARRATIVE: CASE EVENT DATE: 20180227
